FAERS Safety Report 8950337 (Version 1)
Quarter: 2012Q4

REPORT INFORMATION
  Report Type: Spontaneous
  Country: US (occurrence: None)
  Receive Date: 20121130
  Receipt Date: 20121130
  Transmission Date: 20130627
  Serious: No
  Sender: FDA-Public Use
  Company Number: None

PATIENT
  Sex: Male

DRUGS (11)
  1. XARELTO [Suspect]
     Indication: ATRIAL FIBRILLATION
     Dosage: 20 mg daily po
     Route: 048
     Dates: start: 20120813, end: 20121011
  2. ACIPHEX [Concomitant]
  3. ARTHROTEC 75 [Concomitant]
  4. BYSTOLIC [Concomitant]
  5. CIALIS [Concomitant]
  6. ECONAZOLE NITRATE [Concomitant]
  7. EXFORGE [Concomitant]
  8. FLONASE [Concomitant]
  9. FUROSEMIDE [Concomitant]
  10. METROGEL [Concomitant]
  11. SYNTHROID [Concomitant]

REACTIONS (2)
  - Dizziness [None]
  - Atrial fibrillation [None]
